FAERS Safety Report 23314900 (Version 1)
Quarter: 2023Q4

REPORT INFORMATION
  Report Type: Report from Study
  Country: US (occurrence: US)
  Receive Date: 20231219
  Receipt Date: 20231219
  Transmission Date: 20240109
  Serious: No
  Sender: FDA-Public Use
  Company Number: US-HLS-202301009

PATIENT

DRUGS (2)
  1. CLOZAPINE [Suspect]
     Active Substance: CLOZAPINE
     Indication: Depression
     Dosage: 1) FROM 2016 TILL 2020:  250 MG?2) EARLY 2021: 200 MG?3) FROM 24-JUL-2021: 150 MG?4) FROM MAY-2023:
     Route: 065
     Dates: start: 20160420
  2. CLOZAPINE [Suspect]
     Active Substance: CLOZAPINE
     Indication: Schizophrenia
     Dosage: 1) FROM 2016 TILL 2020:  250 MG?2) EARLY 2021: 200 MG?3) FROM 24-JUL-2021: 150 MG?4) FROM MAY-2023:
     Route: 065
     Dates: start: 20160420

REACTIONS (4)
  - Mania [Unknown]
  - Off label use [Unknown]
  - Treatment noncompliance [Unknown]
  - Insomnia [Unknown]
